FAERS Safety Report 23257531 (Version 2)
Quarter: 2024Q1

REPORT INFORMATION
  Report Type: Spontaneous
  Country: US (occurrence: US)
  Receive Date: 20231204
  Receipt Date: 20240207
  Transmission Date: 20240410
  Serious: No
  Sender: FDA-Public Use
  Company Number: US-PFIZER INC-PV202300190495

PATIENT
  Age: 43 Year
  Sex: Female

DRUGS (3)
  1. IBRANCE [Suspect]
     Active Substance: PALBOCICLIB
     Dosage: 100 MG
  2. IBRANCE [Suspect]
     Active Substance: PALBOCICLIB
     Dosage: 75 MG
  3. IBRANCE [Suspect]
     Active Substance: PALBOCICLIB
     Dosage: 100 UNK

REACTIONS (8)
  - Fatigue [Unknown]
  - Malaise [Unknown]
  - Memory impairment [Unknown]
  - Product dose omission in error [Unknown]
  - Product storage error [Unknown]
  - Intentional dose omission [Unknown]
  - Nausea [Unknown]
  - Pain [Unknown]
